FAERS Safety Report 25833923 (Version 2)
Quarter: 2025Q4

REPORT INFORMATION
  Report Type: Spontaneous
  Country: US (occurrence: US)
  Receive Date: 20250923
  Receipt Date: 20251006
  Transmission Date: 20260118
  Serious: No
  Sender: ROCHE
  Company Number: US-ROCHE-10000391453

PATIENT
  Sex: Female

DRUGS (1)
  1. ACTEMRA [Suspect]
     Active Substance: TOCILIZUMAB
     Indication: Product used for unknown indication
     Route: 065
     Dates: start: 202506, end: 202508

REACTIONS (2)
  - Arthralgia [Not Recovered/Not Resolved]
  - Pyrexia [Not Recovered/Not Resolved]
